FAERS Safety Report 16802364 (Version 1)
Quarter: 2019Q3

REPORT INFORMATION
  Report Type: Report from Study
  Country: US (occurrence: US)
  Receive Date: 20190912
  Receipt Date: 20190912
  Transmission Date: 20191005
  Serious: Yes (Hospitalization)
  Sender: FDA-Public Use
  Company Number: US-ACTELION-A-NJ2019-194164

PATIENT
  Sex: Female
  Weight: 50.79 kg

DRUGS (3)
  1. OPSUMIT [Suspect]
     Active Substance: MACITENTAN
     Indication: PULMONARY HYPERTENSION
     Dosage: 10 MG, QD
     Route: 048
  2. ELIQUIS [Concomitant]
     Active Substance: APIXABAN
  3. ADEMPAS [Concomitant]
     Active Substance: RIOCIGUAT

REACTIONS (7)
  - Pneumonia [Unknown]
  - Eye pruritus [Unknown]
  - Lacrimation increased [Unknown]
  - Pruritus [Unknown]
  - Weight increased [Unknown]
  - Hypotension [Unknown]
  - Rash macular [Unknown]
